FAERS Safety Report 9230212 (Version 3)
Quarter: 2013Q2

REPORT INFORMATION
  Report Type: Report from Study
  Country: FR (occurrence: FR)
  Receive Date: 20130415
  Receipt Date: 20130621
  Transmission Date: 20140414
  Serious: Yes (Other)
  Sender: FDA-Public Use
  Company Number: FR-AMGEN-FRACT2013025862

PATIENT
  Age: 63 Year
  Sex: Male
  Weight: 75 kg

DRUGS (10)
  1. PANITUMUMAB [Suspect]
     Indication: GASTROOESOPHAGEAL CANCER
     Dosage: 450 MG, UNK
     Route: 042
     Dates: start: 20120920
  2. FOLINIC ACID [Concomitant]
     Indication: GASTROOESOPHAGEAL CANCER
     Dosage: 350 MG, UNK
     Route: 042
     Dates: start: 20120920
  3. 5-FLUOROURACIL [Concomitant]
     Indication: GASTROOESOPHAGEAL CANCER
     Dosage: UNK
     Route: 042
     Dates: start: 20120920
  4. OXALIPLATIN [Concomitant]
     Indication: GASTROOESOPHAGEAL CANCER
     Dosage: 170 MG, UNK
     Route: 042
     Dates: start: 20120920
  5. INEXIUM [Concomitant]
     Dosage: UNK
     Dates: start: 20121010
  6. LOVENOX [Concomitant]
     Dosage: 4000 IU, UNK
     Route: 058
     Dates: start: 20121010
  7. XATRAL [Concomitant]
     Dosage: 10 MG, UNK
     Dates: start: 20121010
  8. FUNGIZONE [Concomitant]
     Dosage: UNK UNK, TID
     Route: 048
     Dates: start: 20121010
  9. PERFALGAN [Concomitant]
     Dosage: 1 G, QD
     Dates: start: 20121010
  10. ULCAR [Concomitant]
     Dosage: 1 G, BID
     Dates: start: 20121010

REACTIONS (1)
  - Hypoalbuminaemia [Not Recovered/Not Resolved]
